FAERS Safety Report 9958401 (Version 1)
Quarter: 2014Q1

REPORT INFORMATION
  Report Type: Report from Study
  Country: US (occurrence: US)
  Receive Date: 20140305
  Receipt Date: 20140305
  Transmission Date: 20141002
  Serious: Yes (Other)
  Sender: FDA-Public Use
  Company Number: US-ROCHE-1346687

PATIENT
  Sex: Male

DRUGS (5)
  1. LUCENTIS [Suspect]
     Indication: AGE-RELATED MACULAR DEGENERATION
     Route: 050
  2. LUCENTIS [Suspect]
     Indication: CHOROIDAL NEOVASCULARISATION
  3. AVASTIN [Suspect]
     Indication: AGE-RELATED MACULAR DEGENERATION
     Route: 065
  4. FISH OIL [Concomitant]
  5. COMBIGAN [Concomitant]
     Dosage: OD
     Route: 065

REACTIONS (6)
  - Blindness [Unknown]
  - Ophthalmological examination abnormal [Unknown]
  - Vision blurred [Unknown]
  - Cutis laxa [Unknown]
  - Arthralgia [Unknown]
  - Off label use [Unknown]
